FAERS Safety Report 16208274 (Version 2)
Quarter: 2019Q2

REPORT INFORMATION
  Report Type: Spontaneous
  Country: US (occurrence: US)
  Receive Date: 20190417
  Receipt Date: 20190514
  Transmission Date: 20190711
  Serious: Yes (Other)
  Sender: FDA-Public Use
  Company Number: US-AKORN PHARMACEUTICALS-2019AKN00736

PATIENT
  Sex: Male
  Weight: 95.24 kg

DRUGS (3)
  1. MYORISAN [Suspect]
     Active Substance: ISOTRETINOIN
     Indication: ACNE
     Dosage: 30 MG, 2X/DAY
     Dates: start: 20190103, end: 20190403
  2. MULTIVITAMIN [Concomitant]
     Active Substance: VITAMINS
  3. MYORISAN [Suspect]
     Active Substance: ISOTRETINOIN
     Indication: ACNE
     Dosage: UNK
     Dates: start: 20190103, end: 2019

REACTIONS (2)
  - Mood altered [Unknown]
  - Mood swings [Unknown]

NARRATIVE: CASE EVENT DATE: 2019
